FAERS Safety Report 15346120 (Version 1)
Quarter: 2018Q3

REPORT INFORMATION
  Report Type: Spontaneous
  Country: IL (occurrence: IL)
  Receive Date: 20180904
  Receipt Date: 20180904
  Transmission Date: 20181010
  Serious: Yes (Hospitalization)
  Sender: FDA-Public Use
  Company Number: IL-B.I. PHARMACEUTICALS,INC./RIDGEFIELD-2018-BI-043557

PATIENT
  Age: 51 Year
  Sex: Male

DRUGS (1)
  1. JARDIANCE DUO [Suspect]
     Active Substance: EMPAGLIFLOZIN\METFORMIN HYDROCHLORIDE
     Indication: PRODUCT USED FOR UNKNOWN INDICATION
     Dosage: DOSE: 12.5/1000 MILLIGRAM
     Route: 048
     Dates: start: 20180804

REACTIONS (4)
  - Abdominal pain [Unknown]
  - Dry mouth [Unknown]
  - Vomiting [Unknown]
  - Diabetic ketoacidosis [Unknown]
